FAERS Safety Report 19430882 (Version 9)
Quarter: 2022Q2

REPORT INFORMATION
  Report Type: Spontaneous
  Country: US (occurrence: US)
  Receive Date: 20210617
  Receipt Date: 20220414
  Transmission Date: 20220721
  Serious: Yes (Hospitalization, Other)
  Sender: FDA-Public Use
  Company Number: US-PFIZER INC-2021583498

PATIENT
  Age: 63 Year
  Sex: Female
  Weight: 54.422 kg

DRUGS (4)
  1. ESTRING [Suspect]
     Active Substance: ESTRADIOL
     Indication: Hormone therapy
     Dosage: UNK, EVERY 3 MONTHS
     Dates: start: 2021
  2. ESTRING [Suspect]
     Active Substance: ESTRADIOL
     Indication: Bladder disorder
  3. ESTRING [Suspect]
     Active Substance: ESTRADIOL
     Indication: Urinary tract infection
  4. REMERON [Suspect]
     Active Substance: MIRTAZAPINE
     Dosage: UNK

REACTIONS (13)
  - Gallbladder disorder [Recovered/Resolved]
  - Infection [Not Recovered/Not Resolved]
  - Fasciitis [Unknown]
  - Pain [Unknown]
  - Tremor [Recovered/Resolved]
  - Burning sensation [Recovered/Resolved]
  - Pain [Unknown]
  - Cystitis interstitial [Unknown]
  - Disease recurrence [Unknown]
  - Illness [Unknown]
  - Nausea [Unknown]
  - Drug effective for unapproved indication [Unknown]
  - Off label use [Unknown]

NARRATIVE: CASE EVENT DATE: 20210101
